FAERS Safety Report 12354112 (Version 3)
Quarter: 2016Q2

REPORT INFORMATION
  Report Type: Report from Study
  Country: US (occurrence: US)
  Receive Date: 20160511
  Receipt Date: 20160517
  Transmission Date: 20160815
  Serious: Yes (Hospitalization)
  Sender: FDA-Public Use
  Company Number: PHEH2016US011469

PATIENT
  Age: 35 Year
  Sex: Male
  Weight: 73.47 kg

DRUGS (1)
  1. GILENYA [Suspect]
     Active Substance: FINGOLIMOD HYDROCHLORIDE
     Indication: MULTIPLE SCLEROSIS
     Dosage: 0.5 MG, QD
     Route: 048
     Dates: start: 20160425

REACTIONS (4)
  - Vomiting [Unknown]
  - Pneumonia streptococcal [Not Recovered/Not Resolved]
  - Nausea [Unknown]
  - Sepsis [Unknown]

NARRATIVE: CASE EVENT DATE: 20160507
